FAERS Safety Report 7630898-5 (Version None)
Quarter: 2011Q3

REPORT INFORMATION
  Report Type: 
  Country: None (occurrence: None)
  Receive Date: 20110724
  Receipt Date: 20110714
  Transmission Date: 20111222
  Serious: Yes (Hospitalization)
  Sender: FDA-Public Use
  Company Number: US-BRISTOL-MYERS SQUIBB COMPANY-15902240

PATIENT
  Age: 54 Year
  Sex: Male
  Weight: 64 kg

DRUGS (5)
  1. CETUXIMAB [Suspect]
     Indication: NON-SMALL CELL LUNG CANCER
     Dosage: 10DEC10-10DEC;1D LOAD DOSE,250MG/M2 ON DAYS 8,15,22,29,36 OF CYC 1,ON DAYS 1,8,15,22,29,36 OF CYC 2
     Route: 065
     Dates: start: 20101210, end: 20101230
  2. FENTANYL [Concomitant]
     Dosage: PATCH
  3. HYDROCODONE BITARTRATE [Concomitant]
     Indication: PAIN
  4. PACLITAXEL [Suspect]
     Indication: NON-SMALL CELL LUNG CANCER
     Dosage: ON DAY 1 AND 22,360MG ON 21JAN11
     Route: 042
     Dates: start: 20101210, end: 20110223
  5. CARBOPLATIN [Suspect]
     Indication: NON-SMALL CELL LUNG CANCER
     Dosage: AUC=6 ON DAYS 1 AND 22,600MG ON 21JAN11
     Route: 042
     Dates: start: 20101210, end: 20110223

REACTIONS (12)
  - CONVULSION [None]
  - WHITE BLOOD CELL COUNT DECREASED [None]
  - MUSCULAR WEAKNESS [None]
  - FATIGUE [None]
  - NON-CARDIAC CHEST PAIN [None]
  - BLOOD ALKALINE PHOSPHATASE INCREASED [None]
  - SOMNOLENCE [None]
  - ANAEMIA [None]
  - ASPARTATE AMINOTRANSFERASE INCREASED [None]
  - PLATELET COUNT DECREASED [None]
  - FALL [None]
  - DECREASED APPETITE [None]
